FAERS Safety Report 8533714-2 (Version None)
Quarter: 2012Q3

REPORT INFORMATION
  Report Type: 
  Country: None (occurrence: None)
  Receive Date: 20120724
  Receipt Date: 20120716
  Transmission Date: 20120928
  Serious: Yes (Death)
  Sender: FDA-Public Use
  Company Number: US-VERTEX PHARMACEUTICALS INC.-AE-2012-007382

PATIENT
  Sex: Male

DRUGS (8)
  1. LISINOPRIL [Concomitant]
  2. BUPROPION HCL [Concomitant]
  3. INCIVEK [Suspect]
     Indication: HEPATITIS C
     Route: 048
     Dates: start: 20120501
  4. METHADONE HCL [Concomitant]
  5. HYDROCHLOROTHIAZIDE [Concomitant]
  6. PEG-INTRON [Concomitant]
     Indication: HEPATITIS C
     Route: 058
     Dates: start: 20120501
  7. COPEGUS [Concomitant]
     Indication: HEPATITIS C
     Route: 048
     Dates: start: 20120501
  8. METFORMIN HYDROCHLORIDE [Concomitant]

REACTIONS (1)
  - PANCREATITIS [None]
